FAERS Safety Report 25012155 (Version 1)
Quarter: 2025Q1

REPORT INFORMATION
  Report Type: Spontaneous
  Country: US (occurrence: US)
  Receive Date: 20250226
  Receipt Date: 20250226
  Transmission Date: 20250409
  Serious: No
  Sender: TEVA
  Company Number: US-TEVA-VS-3295749

PATIENT
  Age: 70 Year
  Sex: Male

DRUGS (1)
  1. ATENOLOL AND CHLORTHALIDONE [Suspect]
     Active Substance: ATENOLOL\CHLORTHALIDONE
     Indication: Hypertension
     Route: 048

REACTIONS (4)
  - Myalgia [Unknown]
  - Blood pressure increased [Unknown]
  - Stress [Unknown]
  - Muscle discomfort [Not Recovered/Not Resolved]
